FAERS Safety Report 9336369 (Version 1)
Quarter: 2013Q2

REPORT INFORMATION
  Report Type: Report from Study
  Country: CA (occurrence: CA)
  Receive Date: 20130607
  Receipt Date: 20130607
  Transmission Date: 20140414
  Serious: Yes (Hospitalization)
  Sender: FDA-Public Use
  Company Number: CA-JNJFOC-20130406253

PATIENT
  Age: 55 Year
  Sex: Female
  Weight: 50 kg

DRUGS (2)
  1. REMICADE [Suspect]
     Indication: COLITIS ULCERATIVE
     Dosage: X 52
     Route: 042
     Dates: start: 2012
  2. ASPIRIN [Concomitant]
     Route: 048

REACTIONS (2)
  - Hysterectomy [Recovering/Resolving]
  - Coronary artery bypass [Recovering/Resolving]
